FAERS Safety Report 11861670 (Version 4)
Quarter: 2017Q4

REPORT INFORMATION
  Report Type: Report from Study
  Country: None (occurrence: DE)
  Receive Date: 20151222
  Receipt Date: 20171115
  Transmission Date: 20180320
  Serious: Yes (Hospitalization, Other)
  Sender: FDA-Public Use
  Company Number: DE-ABBVIE-15K-062-1520685-00

PATIENT
  Age: 67 Year
  Sex: Male
  Weight: 105 kg

DRUGS (32)
  1. ASPIRIN. [Suspect]
     Active Substance: ASPIRIN
     Route: 065
     Dates: start: 2017
  2. SIMVASTATIN. [Concomitant]
     Active Substance: SIMVASTATIN
     Dosage: DOSE INCREASED
     Dates: start: 201702
  3. LERCANIDIPIN [Concomitant]
     Active Substance: LERCANIDIPINE
     Indication: PRODUCT USED FOR UNKNOWN INDICATION
  4. ASPIRIN. [Suspect]
     Active Substance: ASPIRIN
     Indication: HYPERTENSION
     Dosage: DURING THE LAST TIME
     Route: 065
     Dates: start: 2015, end: 201510
  5. LOSARTAN AND HYDROCHLOROTHIAZIDE [Concomitant]
     Active Substance: HYDROCHLOROTHIAZIDE\LOSARTAN POTASSIUM
     Indication: PRODUCT USED FOR UNKNOWN INDICATION
     Dosage: 100/25
  6. LOSARTAN AND HYDROCHLOROTHIAZIDE [Concomitant]
     Active Substance: HYDROCHLOROTHIAZIDE\LOSARTAN POTASSIUM
     Dosage: 50/25
     Dates: start: 201702
  7. LOSARTAN AND HYDROCHLOROTHIAZIDE [Concomitant]
     Active Substance: HYDROCHLOROTHIAZIDE\LOSARTAN POTASSIUM
     Dosage: 50/12.5
  8. DOXAZOSINE [Concomitant]
     Active Substance: DOXAZOSIN MESYLATE
     Indication: PRODUCT USED FOR UNKNOWN INDICATION
  9. OMEPRAZOL [Concomitant]
     Active Substance: OMEPRAZOLE
     Indication: GASTRIC DISORDER
     Route: 048
     Dates: start: 20170125
  10. LORZAAR [Concomitant]
     Active Substance: LOSARTAN
     Indication: HYPERTENSION
     Dates: start: 20170125
  11. SIMVASTATIN. [Concomitant]
     Active Substance: SIMVASTATIN
     Indication: PRODUCT USED FOR UNKNOWN INDICATION
  12. TERGIN [Concomitant]
     Indication: PRODUCT USED FOR UNKNOWN INDICATION
     Dosage: 20/10
  13. NAPROXEN. [Concomitant]
     Active Substance: NAPROXEN
     Indication: PRODUCT USED FOR UNKNOWN INDICATION
  14. SALBUTAMOL DA [Concomitant]
     Indication: PRODUCT USED FOR UNKNOWN INDICATION
  15. ASPIRIN. [Suspect]
     Active Substance: ASPIRIN
     Route: 065
     Dates: start: 201702, end: 2017
  16. NOVALGIN [Concomitant]
     Active Substance: METAMIZOLE SODIUM
     Indication: PRODUCT USED FOR UNKNOWN INDICATION
  17. ATROVENT [Concomitant]
     Active Substance: IPRATROPIUM BROMIDE
     Indication: PRODUCT USED FOR UNKNOWN INDICATION
  18. HUMIRA [Suspect]
     Active Substance: ADALIMUMAB
     Indication: PSORIASIS
     Route: 058
     Dates: start: 20130605
  19. ASPIRIN. [Suspect]
     Active Substance: ASPIRIN
     Route: 048
     Dates: start: 201510, end: 201701
  20. ACETYLCYSTEIN [Concomitant]
     Active Substance: ACETYLCYSTEINE
     Indication: PRODUCT USED FOR UNKNOWN INDICATION
  21. RAMIPRIL. [Concomitant]
     Active Substance: RAMIPRIL
     Indication: PRODUCT USED FOR UNKNOWN INDICATION
  22. LACTULOSE. [Concomitant]
     Active Substance: LACTULOSE
     Indication: PRODUCT USED FOR UNKNOWN INDICATION
  23. YENTREVE [Concomitant]
     Active Substance: DULOXETINE HYDROCHLORIDE
     Indication: PRODUCT USED FOR UNKNOWN INDICATION
  24. HCT [Concomitant]
     Active Substance: HYDROCHLOROTHIAZIDE
     Indication: PRODUCT USED FOR UNKNOWN INDICATION
  25. MORPHINE [Concomitant]
     Active Substance: MORPHINE
     Indication: PRODUCT USED FOR UNKNOWN INDICATION
  26. TORASEMID [Concomitant]
     Active Substance: TORSEMIDE
     Indication: PRODUCT USED FOR UNKNOWN INDICATION
     Dosage: FREQUENCY: 1.5 PER DAY
  27. FLUPIRTINE [Concomitant]
     Active Substance: FLUPIRTINE
     Indication: PRODUCT USED FOR UNKNOWN INDICATION
  28. OMEPRAZOL [Concomitant]
     Active Substance: OMEPRAZOLE
     Indication: PROPHYLAXIS
     Dosage: DOSE INCREASED
  29. SIMETICON TROPFEN [Concomitant]
     Indication: PRODUCT USED FOR UNKNOWN INDICATION
  30. PANTOPRAZOL [Concomitant]
     Active Substance: PANTOPRAZOLE SODIUM
     Indication: PRODUCT USED FOR UNKNOWN INDICATION
  31. PANTOPRAZOL [Concomitant]
     Active Substance: PANTOPRAZOLE SODIUM
  32. TOREM [Concomitant]
     Active Substance: TORSEMIDE
     Indication: PRODUCT USED FOR UNKNOWN INDICATION

REACTIONS (50)
  - Left ventricular enlargement [Unknown]
  - Spinal osteoarthritis [Unknown]
  - Hiatus hernia [Unknown]
  - Dyspepsia [Recovering/Resolving]
  - Hepatic steatosis [Unknown]
  - Aortic arteriosclerosis [Recovered/Resolved]
  - Angina pectoris [Recovered/Resolved]
  - Blood potassium increased [Unknown]
  - Pulmonary hypoperfusion [Unknown]
  - Acute coronary syndrome [Recovered/Resolved]
  - Arteriosclerosis coronary artery [Unknown]
  - Left atrial dilatation [Unknown]
  - Coronary artery disease [Unknown]
  - Myocardial infarction [Recovered/Resolved]
  - Aortic valve incompetence [Unknown]
  - Reflux gastritis [Recovering/Resolving]
  - Kyphosis [Unknown]
  - Osteochondrosis [Unknown]
  - Coronary artery stenosis [Recovered/Resolved]
  - Joint swelling [Unknown]
  - Diverticulum intestinal [Unknown]
  - Blood uric acid increased [Unknown]
  - Scoliosis [Unknown]
  - Lordosis [Unknown]
  - Osteoarthritis [Recovered/Resolved]
  - Aortic arteriosclerosis [Unknown]
  - Post procedural swelling [Unknown]
  - Hypothyroidism [Unknown]
  - Gastritis [Recovered/Resolved]
  - Hypertensive crisis [Recovered/Resolved]
  - Acute coronary syndrome [Recovered/Resolved]
  - Arthroscopy [Unknown]
  - Chronic obstructive pulmonary disease [Unknown]
  - Acute myocardial infarction [Recovered/Resolved]
  - Aortic valve sclerosis [Unknown]
  - Renal cyst [Unknown]
  - Hiatus hernia [Recovered/Resolved]
  - Dyspepsia [Unknown]
  - Nausea [Recovering/Resolving]
  - Procedural complication [Recovered/Resolved]
  - Hepatic cyst [Unknown]
  - Hypertensive crisis [Recovered/Resolved]
  - Pulmonary artery stenosis [Unknown]
  - Abdominal pain [Recovering/Resolving]
  - Aortic elongation [Unknown]
  - Ischaemia [Recovered/Resolved]
  - Gastrooesophageal reflux disease [Recovered/Resolved]
  - Coronary artery disease [Unknown]
  - Wheezing [Unknown]
  - Hyperlipidaemia [Unknown]

NARRATIVE: CASE EVENT DATE: 20150819
